FAERS Safety Report 16660456 (Version 1)
Quarter: 2019Q3

REPORT INFORMATION
  Report Type: Spontaneous
  Country: IN (occurrence: IN)
  Receive Date: 20190802
  Receipt Date: 20190802
  Transmission Date: 20191004
  Serious: No
  Sender: FDA-Public Use
  Company Number: IN-MACLEODS PHARMACEUTICALS LTD-MAC2019022407

PATIENT

DRUGS (1)
  1. OMNACORTIL 40 MG TABLET (PREDNISOLONE) [Suspect]
     Active Substance: PREDNISOLONE
     Indication: ALLERGIC COUGH
     Dosage: 40 MILLIGRAM
     Route: 048
     Dates: start: 20190723

REACTIONS (2)
  - Product taste abnormal [Unknown]
  - Nausea [Unknown]

NARRATIVE: CASE EVENT DATE: 20190723
